FAERS Safety Report 9203106 (Version 2)
Quarter: 2013Q2

REPORT INFORMATION
  Report Type: Other
  Country: US (occurrence: US)
  Receive Date: 20130402
  Receipt Date: 20130502
  Transmission Date: 20140414
  Serious: Yes (Other)
  Sender: FDA-Public Use
  Company Number: US-SHIRE-ALL1-2013-01952

PATIENT
  Sex: Female
  Weight: 70 kg

DRUGS (1)
  1. VPRIV [Suspect]
     Indication: GAUCHER^S DISEASE
     Dosage: 4000 IU (10 VIALS), OTHER (TWICE MONTHLY)
     Route: 041
     Dates: start: 20100614

REACTIONS (1)
  - Femur fracture [Not Recovered/Not Resolved]
